FAERS Safety Report 21883986 (Version 2)
Quarter: 2023Q1

REPORT INFORMATION
  Report Type: Report from Study
  Country: CA (occurrence: CA)
  Receive Date: 20230119
  Receipt Date: 20230209
  Transmission Date: 20230418
  Serious: No
  Sender: FDA-Public Use
  Company Number: CA-BIOGEN-2022BI01108305

PATIENT
  Age: 29 Year
  Sex: Female

DRUGS (1)
  1. TECFIDERA [Suspect]
     Active Substance: DIMETHYL FUMARATE
     Indication: Multiple sclerosis
     Route: 050
     Dates: start: 20190323

REACTIONS (7)
  - Blood ketone body present [Unknown]
  - White blood cells urine positive [Unknown]
  - Specific gravity urine increased [Unknown]
  - Red cell distribution width decreased [Unknown]
  - Protein urine present [Unknown]
  - Urine ketone body present [Unknown]
  - Neutrophil count decreased [Unknown]

NARRATIVE: CASE EVENT DATE: 20220104
